FAERS Safety Report 10367887 (Version 5)
Quarter: 2015Q2

REPORT INFORMATION
  Report Type: Spontaneous
  Country: US (occurrence: US)
  Receive Date: 20140807
  Receipt Date: 20150529
  Transmission Date: 20150821
  Serious: No
  Sender: FDA-Public Use
  Company Number: US-PFIZER INC-2014216461

PATIENT
  Age: 58 Year
  Sex: Female
  Weight: 64 kg

DRUGS (6)
  1. SUTENT [Suspect]
     Active Substance: SUNITINIB MALATE
     Indication: NEOPLASM MALIGNANT
     Dosage: UNK, CYCLIC
  2. VITAMIN B12 [Concomitant]
     Active Substance: CYANOCOBALAMIN
     Dosage: UNK
  3. FOLIC ACID. [Concomitant]
     Active Substance: FOLIC ACID
     Dosage: UNK
  4. SUTENT [Suspect]
     Active Substance: SUNITINIB MALATE
     Dosage: 37.5 MG, CYCLIC (3 WEEKS ON AND 2 WEEKS OFF)
  5. SUTENT [Suspect]
     Active Substance: SUNITINIB MALATE
     Dosage: 50 MG, UNK
     Dates: start: 20140627
  6. ATENOLOL. [Concomitant]
     Active Substance: ATENOLOL
     Dosage: UNK

REACTIONS (19)
  - Pain in extremity [Recovering/Resolving]
  - Neoplasm malignant [Unknown]
  - Gingival pain [Unknown]
  - Dysuria [Unknown]
  - Skin disorder [Unknown]
  - Hyperaesthesia [Unknown]
  - Hair colour changes [Unknown]
  - Dyspepsia [Unknown]
  - Disease progression [Unknown]
  - Lacrimation increased [Not Recovered/Not Resolved]
  - Eye disorder [Unknown]
  - Dysgeusia [Not Recovered/Not Resolved]
  - Oral pain [Unknown]
  - Thyroid disorder [Not Recovered/Not Resolved]
  - Anorectal discomfort [Not Recovered/Not Resolved]
  - Diarrhoea [Not Recovered/Not Resolved]
  - Decreased appetite [Unknown]
  - Oral discomfort [Unknown]
  - Incision site pain [Unknown]
